FAERS Safety Report 18304352 (Version 3)
Quarter: 2020Q4

REPORT INFORMATION
  Report Type: Report from Study
  Country: US (occurrence: US)
  Receive Date: 20200924
  Receipt Date: 20201016
  Transmission Date: 20210113
  Serious: Yes (Other)
  Sender: FDA-Public Use
  Company Number: US-UCBSA-2020036572

PATIENT
  Age: 29 Year
  Sex: Female
  Weight: 52 kg

DRUGS (2)
  1. CERTOLIZUMAB PEGOL [Suspect]
     Active Substance: CERTOLIZUMAB PEGOL
     Indication: PSORIATIC ARTHROPATHY
     Dosage: 400 MILLIGRAM, EV 2 WEEKS(QOW); NO OF DOSES RECEIVED: 2 LOADING DOSES
     Route: 058
     Dates: start: 20200826, end: 202009
  2. CERTOLIZUMAB PEGOL [Suspect]
     Active Substance: CERTOLIZUMAB PEGOL
     Indication: PSORIASIS

REACTIONS (2)
  - Psoriasis [Recovering/Resolving]
  - Heart rate increased [Recovered/Resolved]

NARRATIVE: CASE EVENT DATE: 202008
